FAERS Safety Report 5207646-1 (Version None)
Quarter: 2007Q1

REPORT INFORMATION
  Report Type: 
  Country: None (occurrence: None)
  Receive Date: 20070112
  Receipt Date: 20070102
  Transmission Date: 20070707
  Serious: Yes (Disabling)
  Sender: FDA-Public Use
  Company Number: CA-PFIZER INC-2006143904

PATIENT
  Sex: Female
  Weight: 45.4 kg

DRUGS (1)
  1. LYRICA [Suspect]
     Indication: PELVIC PAIN
     Route: 048
     Dates: start: 20061115, end: 20061116

REACTIONS (6)
  - ABASIA [None]
  - DIZZINESS [None]
  - HYPOAESTHESIA ORAL [None]
  - IMPAIRED DRIVING ABILITY [None]
  - NAUSEA [None]
  - VOMITING [None]
